FAERS Safety Report 5259878-4 (Version None)
Quarter: 2007Q1

REPORT INFORMATION
  Report Type: 
  Country: None (occurrence: None)
  Receive Date: 20070306
  Receipt Date: 20070228
  Transmission Date: 20070707
  Serious: Yes (Hospitalization)
  Sender: FDA-Public Use
  Company Number: 2007P1000106

PATIENT
  Age: 59 Year
  Sex: Male

DRUGS (1)
  1. BUSULFAN  (BUSULFAN ) [Suspect]
     Indication: STEM CELL TRANSPLANT

REACTIONS (5)
  - CARDIAC FAILURE [None]
  - OEDEMA MOUTH [None]
  - PYREXIA [None]
  - RENAL FAILURE [None]
  - STOMATITIS [None]
